FAERS Safety Report 12285359 (Version 1)
Quarter: 2016Q2

REPORT INFORMATION
  Report Type: Spontaneous
  Country: DE (occurrence: DE)
  Receive Date: 20160420
  Receipt Date: 20160420
  Transmission Date: 20160815
  Serious: Yes (Other)
  Sender: FDA-Public Use
  Company Number: DE-AMGEN-DEUSP2016046103

PATIENT
  Sex: Female

DRUGS (1)
  1. PROLIA [Suspect]
     Active Substance: DENOSUMAB
     Indication: OSTEOPOROSIS
     Dosage: 60 MG, Q6MO
     Route: 065
     Dates: start: 2010

REACTIONS (8)
  - Cardiac operation [Unknown]
  - Fatigue [Unknown]
  - Heart rate increased [Unknown]
  - Muscle spasms [Unknown]
  - Respiratory disorder [Unknown]
  - Musculoskeletal stiffness [Unknown]
  - Spinal fracture [Unknown]
  - Arthropathy [Unknown]

NARRATIVE: CASE EVENT DATE: 2015
